FAERS Safety Report 24738061 (Version 2)
Quarter: 2024Q4

REPORT INFORMATION
  Report Type: Spontaneous
  Country: US (occurrence: US)
  Receive Date: 20241216
  Receipt Date: 20241223
  Transmission Date: 20250115
  Serious: No
  Sender: ELI LILLY AND COMPANY
  Company Number: US-ELI_LILLY_AND_COMPANY-US202412007525

PATIENT
  Age: 73 Year
  Sex: Female

DRUGS (2)
  1. ZEPBOUND [Suspect]
     Active Substance: TIRZEPATIDE
     Indication: Product used for unknown indication
     Dosage: 5 MG, UNKNOWN
     Route: 065
  2. KEFLEX [Suspect]
     Active Substance: CEPHALEXIN
     Indication: Pseudomembranous colitis
     Dosage: UNK UNK, UNKNOWN
     Route: 065

REACTIONS (2)
  - Clostridium difficile colitis [Not Recovered/Not Resolved]
  - Feeding disorder [Unknown]
